FAERS Safety Report 17163212 (Version 1)
Quarter: 2019Q4

REPORT INFORMATION
  Report Type: Spontaneous
  Country: GB (occurrence: GB)
  Receive Date: 20191217
  Receipt Date: 20191217
  Transmission Date: 20200122
  Serious: Yes (Life-Threatening, Hospitalization, Disabling, Other)
  Sender: FDA-Public Use
  Company Number: GB-TEVA-2019-GB-1152370

PATIENT
  Age: 69 Year
  Sex: Male

DRUGS (3)
  1. TIZANIDINE. [Interacting]
     Active Substance: TIZANIDINE
     Dosage: 4 MG
     Route: 048
     Dates: end: 20060518
  2. CIPROFLOXACIN. [Suspect]
     Active Substance: CIPROFLOXACIN
     Dosage: UNIT DOSE: 500 MG
     Route: 048
     Dates: start: 20060513
  3. ASPIRIN. [Concomitant]
     Active Substance: ASPIRIN
     Dosage: UNIT DOSE: 75 MG
     Route: 048

REACTIONS (2)
  - Drug interaction [Recovered/Resolved]
  - Hypotension [Recovered/Resolved]

NARRATIVE: CASE EVENT DATE: 20060514
